FAERS Safety Report 12529914 (Version 1)
Quarter: 2016Q3

REPORT INFORMATION
  Report Type: Spontaneous
  Country: IT (occurrence: IT)
  Receive Date: 20160706
  Receipt Date: 20160706
  Transmission Date: 20161109
  Serious: Yes (Other)
  Sender: FDA-Public Use
  Company Number: IT-ROCHE-1789616

PATIENT
  Age: 49 Year
  Sex: Female

DRUGS (1)
  1. KADCYLA [Suspect]
     Active Substance: ADO-TRASTUZUMAB EMTANSINE
     Indication: BREAST CANCER
     Dosage: GLASS VIAL (1 VIAL)
     Route: 042

REACTIONS (2)
  - Skin exfoliation [Unknown]
  - Multiple injuries [Unknown]

NARRATIVE: CASE EVENT DATE: 20160628
